FAERS Safety Report 14774035 (Version 7)
Quarter: 2019Q2

REPORT INFORMATION
  Report Type: Report from Study
  Country: US (occurrence: US)
  Receive Date: 20180418
  Receipt Date: 20190514
  Transmission Date: 20190711
  Serious: Yes (Hospitalization, Other)
  Sender: FDA-Public Use
  Company Number: US-ASTELLAS-2018US018271

PATIENT
  Age: 70 Year
  Sex: Male

DRUGS (1)
  1. ENZALUTAMIDE [Suspect]
     Active Substance: ENZALUTAMIDE
     Indication: HORMONE-REFRACTORY PROSTATE CANCER
     Route: 048
     Dates: start: 20180426

REACTIONS (6)
  - Pain in extremity [Unknown]
  - Hip fracture [Recovering/Resolving]
  - Bone disorder [Unknown]
  - Haemorrhage [Unknown]
  - Device fastener issue [Recovering/Resolving]
  - Limb discomfort [Unknown]

NARRATIVE: CASE EVENT DATE: 20180501
